FAERS Safety Report 6076213-2 (Version None)
Quarter: 2009Q1

REPORT INFORMATION
  Report Type: 
  Country: None (occurrence: None)
  Receive Date: 20090212
  Receipt Date: 20090204
  Transmission Date: 20090719
  Serious: Yes (Other)
  Sender: FDA-Public Use
  Company Number: AU-PFIZER INC-2009162191

PATIENT

DRUGS (9)
  1. LYRICA [Suspect]
     Indication: NEURALGIA
     Dosage: 75 MG, 2X/DAY
     Route: 048
     Dates: start: 20081014, end: 20081104
  2. PRAZOSIN [Concomitant]
     Dosage: UNK
     Route: 048
  3. SOMAC [Concomitant]
     Dosage: UNK
     Route: 048
  4. ZYLOPRIM [Concomitant]
  5. COVERSYL PLUS [Concomitant]
     Dosage: UNK
     Route: 048
  6. COVERSYL [Concomitant]
     Dosage: UNK
     Route: 048
  7. PREDNISOLONE [Concomitant]
  8. SALAZOPYRIN [Concomitant]
     Dosage: 1000 MG, 3X/DAY
     Route: 048
  9. ATENOLOL [Concomitant]

REACTIONS (10)
  - BALANCE DISORDER [None]
  - DYSARTHRIA [None]
  - DYSKINESIA [None]
  - ERYTHEMA [None]
  - FEELING ABNORMAL [None]
  - FEELING DRUNK [None]
  - HYPERHIDROSIS [None]
  - INCOHERENT [None]
  - MALAISE [None]
  - NAUSEA [None]
